FAERS Safety Report 20189385 (Version 3)
Quarter: 2022Q3

REPORT INFORMATION
  Report Type: Spontaneous
  Country: US (occurrence: US)
  Receive Date: 20211215
  Receipt Date: 20220810
  Transmission Date: 20221027
  Serious: Yes (Other)
  Sender: FDA-Public Use
  Company Number: US-PFIZER INC-202101587577

PATIENT
  Age: 63 Year
  Sex: Female

DRUGS (3)
  1. IBRANCE [Suspect]
     Active Substance: PALBOCICLIB
     Dosage: 100 MG
     Dates: start: 20211101
  2. IBRANCE [Suspect]
     Active Substance: PALBOCICLIB
     Dosage: 100 MG
  3. REMERON [Suspect]
     Active Substance: MIRTAZAPINE
     Dosage: UNK
     Dates: start: 20211101

REACTIONS (11)
  - Internal haemorrhage [Unknown]
  - Product dose omission in error [Unknown]
  - Blood test abnormal [Unknown]
  - Anosmia [Unknown]
  - Ageusia [Unknown]
  - Dyspnoea [Unknown]
  - Constipation [Recovering/Resolving]
  - Concussion [Unknown]
  - Memory impairment [Unknown]
  - Decreased appetite [Unknown]
  - Hot flush [Unknown]

NARRATIVE: CASE EVENT DATE: 20210101
